FAERS Safety Report 23481720 (Version 5)
Quarter: 2025Q2

REPORT INFORMATION
  Report Type: Spontaneous
  Country: AR (occurrence: AR)
  Receive Date: 20240205
  Receipt Date: 20250514
  Transmission Date: 20250716
  Serious: Yes (Other)
  Sender: SANDOZ
  Company Number: AR-002147023-NVSC2023AR049938

PATIENT
  Age: 76 Year
  Sex: Female

DRUGS (15)
  1. KISQALI [Suspect]
     Active Substance: RIBOCICLIB SUCCINATE
     Dosage: 2 DF, QD
     Route: 065
  2. KISQALI [Suspect]
     Active Substance: RIBOCICLIB SUCCINATE
     Dosage: 200 MG, QD
     Route: 048
  3. KISQALI [Suspect]
     Active Substance: RIBOCICLIB SUCCINATE
     Dosage: 3 DOSAGE FORM, QD (MORE THAN A YEAR AGO)
     Route: 065
  4. KISQALI [Suspect]
     Active Substance: RIBOCICLIB SUCCINATE
     Dosage: 400 MG, QD
     Route: 048
  5. KISQALI [Suspect]
     Active Substance: RIBOCICLIB SUCCINATE
     Indication: Breast cancer metastatic
     Dosage: 400 MG, QD (2 TABLETS)
     Route: 048
  6. KISQALI [Suspect]
     Active Substance: RIBOCICLIB SUCCINATE
     Dosage: 400 MG, QD
     Route: 048
  7. KISQALI [Suspect]
     Active Substance: RIBOCICLIB SUCCINATE
     Dosage: 600 MG, QD (3 TABLETS, ONCE DAILY)
     Route: 048
     Dates: start: 20221215
  8. KISQALI [Suspect]
     Active Substance: RIBOCICLIB SUCCINATE
     Route: 065
     Dates: start: 20221115
  9. KISQALI [Suspect]
     Active Substance: RIBOCICLIB SUCCINATE
     Route: 065
     Dates: start: 20221223
  10. LETROZOLE [Suspect]
     Active Substance: LETROZOLE
     Indication: Breast cancer
     Dosage: 2.5 MG, QD
     Route: 048
     Dates: start: 20221215
  11. ZOLEDRONIC ACID [Suspect]
     Active Substance: ZOLEDRONIC ACID
     Indication: Product used for unknown indication
     Route: 065
  12. Nimodilat plus [Concomitant]
     Indication: Product used for unknown indication
     Route: 065
  13. Nimodilat plus [Concomitant]
     Indication: Product used for unknown indication
     Route: 065
  14. PAROXETINE [Concomitant]
     Active Substance: PAROXETINE
     Indication: Product used for unknown indication
     Route: 065
  15. ROSUVASTATIN [Concomitant]
     Active Substance: ROSUVASTATIN
     Indication: Product used for unknown indication
     Route: 065

REACTIONS (32)
  - Cerebrovascular accident [Unknown]
  - Metastasis [Unknown]
  - Metastases to spine [Unknown]
  - Metastases to neck [Unknown]
  - Renal failure [Unknown]
  - Apathy [Unknown]
  - Pain [Recovering/Resolving]
  - Blister [Unknown]
  - Oral mucosal blistering [Unknown]
  - Somnolence [Unknown]
  - Nail disorder [Unknown]
  - Decreased immune responsiveness [Unknown]
  - Neoplasm [Unknown]
  - Onychomadesis [Unknown]
  - Stress [Unknown]
  - Scar [Unknown]
  - Tumour marker increased [Unknown]
  - Amnesia [Unknown]
  - Depression [Unknown]
  - Depressed mood [Unknown]
  - Alopecia [Unknown]
  - Vomiting [Unknown]
  - Fatigue [Unknown]
  - Decreased appetite [Unknown]
  - White blood cell count decreased [Unknown]
  - Sleep talking [Unknown]
  - Speech disorder [Unknown]
  - Osteoarthritis [Unknown]
  - Blood cholesterol increased [Unknown]
  - Hypotension [Unknown]
  - Dizziness [Unknown]
  - Concomitant disease aggravated [Unknown]

NARRATIVE: CASE EVENT DATE: 20221201
